FAERS Safety Report 21185041 (Version 1)
Quarter: 2022Q3

REPORT INFORMATION
  Report Type: Report from Study
  Country: CN (occurrence: CN)
  Receive Date: 20220808
  Receipt Date: 20220808
  Transmission Date: 20221027
  Serious: No
  Sender: FDA-Public Use
  Company Number: CN-BAXTER-2021BAX032466

PATIENT
  Age: 80 Year
  Sex: Male
  Weight: 90 kg

DRUGS (14)
  1. AMINO ACIDS\DEXTROSE\ELECTROLYTES NOS\SOYBEAN OIL [Suspect]
     Active Substance: AMINO ACIDS\DEXTROSE\ELECTROLYTES NOS\SOYBEAN OIL
     Indication: Product used for unknown indication
     Dosage: 1500 ML ONCE, INFUSION RATE OF 3 ML/KG/H
     Route: 065
     Dates: start: 20210323, end: 20210331
  2. AMINO ACIDS\DEXTROSE\ELECTROLYTES NOS\SOYBEAN OIL [Suspect]
     Active Substance: AMINO ACIDS\DEXTROSE\ELECTROLYTES NOS\SOYBEAN OIL
     Dosage: PM
     Route: 065
     Dates: start: 20210327
  3. AMINO ACIDS\DEXTROSE\ELECTROLYTES NOS\SOYBEAN OIL [Suspect]
     Active Substance: AMINO ACIDS\DEXTROSE\ELECTROLYTES NOS\SOYBEAN OIL
     Dosage: PM
     Route: 065
     Dates: start: 20210421
  4. ILAPRAZOLE [Concomitant]
     Active Substance: ILAPRAZOLE
     Indication: Antacid therapy
     Dosage: 10 MILLIGRAM,QD (PERIPHERAL VEIN/CENTRAL VEIN
     Route: 042
     Dates: start: 20210322, end: 20210331
  5. ILAPRAZOLE [Concomitant]
     Active Substance: ILAPRAZOLE
     Indication: Intestinal obstruction
  6. CEFTIZOXIME SODIUM [Concomitant]
     Active Substance: CEFTIZOXIME SODIUM
     Indication: Anti-infective therapy
     Dosage: 3 GRAM,BID (PERIPHERAL VEIN/ CENTRAL VEIN)
     Route: 042
     Dates: start: 20210322, end: 20210331
  7. CEFTIZOXIME SODIUM [Concomitant]
     Active Substance: CEFTIZOXIME SODIUM
     Indication: Intestinal obstruction
  8. VITAMINS [Concomitant]
     Active Substance: VITAMINS
     Indication: Nutritional supplementation
     Dosage: 5 ML,QD (PERIPHERAL VEIN/CENTRAL VEIN)
     Route: 042
     Dates: start: 20210323, end: 20210331
  9. NADROPARIN CALCIUM [Concomitant]
     Active Substance: NADROPARIN CALCIUM
     Indication: Anticoagulant therapy
     Dosage: 4100 IU,QD
     Route: 058
     Dates: start: 20210323, end: 20210331
  10. VITAMINS [Concomitant]
     Active Substance: VITAMINS
     Indication: Drug therapy
     Dosage: 5 ML,ONCE
     Route: 065
     Dates: start: 20210323, end: 20210331
  11. UNSPECIFIED INGREDIENT [Concomitant]
     Active Substance: UNSPECIFIED INGREDIENT
     Indication: Drug therapy
     Dosage: 80 ML,ONCE
     Route: 065
     Dates: start: 20210323, end: 20210331
  12. WATER [Concomitant]
     Active Substance: WATER
     Indication: Drug therapy
     Dosage: 10 ML,ONCE
     Route: 065
     Dates: start: 20210323, end: 20210331
  13. INSULIN NOS [Concomitant]
     Active Substance: INSULIN NOS
     Indication: Drug therapy
     Dosage: 20 IU (INTERNATIONAL UNIT),ONCE
     Route: 065
     Dates: start: 20210323, end: 20210331
  14. Morinidazole and Sodium Chloride [Concomitant]
     Indication: Intestinal obstruction
     Dosage: 0.5 G, TWICE DAILY(PERIPHERAL VEIN/CENTRAL VEIN)
     Route: 042
     Dates: start: 20210322, end: 20210331

REACTIONS (1)
  - Hepatic function abnormal [Recovered/Resolved]

NARRATIVE: CASE EVENT DATE: 20210325
